FAERS Safety Report 6399217-9 (Version None)
Quarter: 2009Q4

REPORT INFORMATION
  Report Type: 
  Country: None (occurrence: None)
  Receive Date: 20091008
  Receipt Date: 20090930
  Transmission Date: 20100525
  Serious: Yes (Hospitalization)
  Sender: FDA-Public Use
  Company Number: GXKR2009GB10840

PATIENT
  Age: 46 Year
  Sex: Male

DRUGS (2)
  1. GABAPENTIN [Suspect]
     Indication: NEURALGIA
     Dosage: 300 MG, TID, ORAL
     Route: 048
     Dates: start: 20090806, end: 20090827
  2. DIHYDROCODEINE COMPOUND [Concomitant]

REACTIONS (1)
  - MYOSITIS [None]
